FAERS Safety Report 15474227 (Version 1)
Quarter: 2018Q4

REPORT INFORMATION
  Report Type: Report from Study
  Country: None (occurrence: BR)
  Receive Date: 20181008
  Receipt Date: 20181008
  Transmission Date: 20190205
  Serious: Yes (Hospitalization, Other)
  Sender: FDA-Public Use
  Company Number: BR-ABBVIE-18K-020-2509380-00

PATIENT
  Age: 28 Year
  Sex: Male

DRUGS (1)
  1. HUMIRA [Suspect]
     Active Substance: ADALIMUMAB
     Indication: CROHN^S DISEASE
     Route: 058
     Dates: end: 2014

REACTIONS (5)
  - Coma [Recovered/Resolved]
  - Head injury [Unknown]
  - Accident [Unknown]
  - Crohn^s disease [Unknown]
  - Post-traumatic amnestic disorder [Unknown]

NARRATIVE: CASE EVENT DATE: 201401
